FAERS Safety Report 4315217-4 (Version None)
Quarter: 2004Q1

REPORT INFORMATION
  Report Type: 
  Country: None (occurrence: None)
  Receive Date: 20040310
  Receipt Date: 20040225
  Transmission Date: 20041129
  Serious: Yes (Death, Other)
  Sender: FDA-Public Use
  Company Number: US_0402101057

PATIENT
  Age: 81 Year
  Sex: Female

DRUGS (2)
  1. GEMZAR [Suspect]
     Indication: PERITONEAL CARCINOMA
     Dosage: 1000 MG/M2 OTHER
     Route: 050
  2. CARBOPLATIN [Concomitant]

REACTIONS (4)
  - NECROTISING COLITIS [None]
  - RENAL TUBULAR NECROSIS [None]
  - SEPTIC SHOCK [None]
  - VASCULITIS [None]
